FAERS Safety Report 24194544 (Version 1)
Quarter: 2024Q3

REPORT INFORMATION
  Report Type: Report from Study
  Country: OM (occurrence: OM)
  Receive Date: 20240809
  Receipt Date: 20240809
  Transmission Date: 20241017
  Serious: Yes (Other)
  Sender: AEGERION
  Company Number: OM-AMRYT PHARMACEUTICALS DAC-AEGR007314

PATIENT

DRUGS (2)
  1. METRELEPTIN [Suspect]
     Active Substance: METRELEPTIN
     Indication: Congenital generalised lipodystrophy
     Dosage: 5 MILLIGRAM, QD
     Route: 058
     Dates: start: 201807
  2. METRELEPTIN [Suspect]
     Active Substance: METRELEPTIN
     Dosage: 6.25 MILLIGRAM, QD
     Route: 058

REACTIONS (3)
  - Acanthosis nigricans [Recovering/Resolving]
  - Hepatic enzyme abnormal [Recovering/Resolving]
  - Lipids abnormal [Recovering/Resolving]

NARRATIVE: CASE EVENT DATE: 20240505
